FAERS Safety Report 7325010-6 (Version None)
Quarter: 2011Q1

REPORT INFORMATION
  Report Type: 
  Country: None (occurrence: None)
  Receive Date: 20110301
  Receipt Date: 20110222
  Transmission Date: 20110831
  Serious: Yes (Other)
  Sender: FDA-Public Use
  Company Number: JP-BRISTOL-MYERS SQUIBB COMPANY-15552599

PATIENT
  Age: 78 Year
  Sex: Female

DRUGS (1)
  1. ABILIFY [Suspect]
     Dosage: 27OCT10-01NOV10(6D)3MG/D 02NOV10-09NOV10(8D)6MG/D(DOSE INCREASED)
     Route: 048
     Dates: start: 20101027, end: 20101109

REACTIONS (3)
  - BLOOD CHLORIDE DECREASED [None]
  - BLOOD POTASSIUM DECREASED [None]
  - BLOOD SODIUM DECREASED [None]
